FAERS Safety Report 9322344 (Version 1)
Quarter: 2013Q2

REPORT INFORMATION
  Report Type: Spontaneous
  Country: US (occurrence: US)
  Receive Date: 20130531
  Receipt Date: 20130531
  Transmission Date: 20140414
  Serious: Yes (Hospitalization)
  Sender: FDA-Public Use
  Company Number: US-TEVA-409033USA

PATIENT
  Sex: Male

DRUGS (2)
  1. TREANDA [Suspect]
  2. RITUXIN [Concomitant]

REACTIONS (2)
  - Dizziness [Unknown]
  - Anxiety [Unknown]
